FAERS Safety Report 12180298 (Version 1)
Quarter: 2016Q1

REPORT INFORMATION
  Report Type: Spontaneous
  Country: US (occurrence: None)
  Receive Date: 20160314
  Receipt Date: 20160314
  Transmission Date: 20160526
  Serious: No
  Sender: FDA-Public Use
  Company Number: None

PATIENT
  Age: 6 Year
  Sex: Male
  Weight: 25.86 kg

DRUGS (1)
  1. MIRALAX [Suspect]
     Active Substance: POLYETHYLENE GLYCOL 3350
     Indication: CONSTIPATION
     Dosage: 1/2 CAP FULL DAILY ONCE DAILY TAKEN BY MOUTH
     Route: 048

REACTIONS (4)
  - Panic attack [None]
  - Abnormal behaviour [None]
  - Migraine [None]
  - Vomiting [None]

NARRATIVE: CASE EVENT DATE: 20160307
